FAERS Safety Report 24071428 (Version 1)
Quarter: 2024Q3

REPORT INFORMATION
  Report Type: Report from Study
  Country: AR (occurrence: AR)
  Receive Date: 20240710
  Receipt Date: 20240710
  Transmission Date: 20241017
  Serious: No
  Sender: ROCHE
  Company Number: AR-ROCHE-3493800

PATIENT
  Age: 34 Year
  Sex: Female
  Weight: 45.0 kg

DRUGS (1)
  1. RISDIPLAM [Suspect]
     Active Substance: RISDIPLAM
     Indication: Spinal muscular atrophy
     Route: 065
     Dates: start: 20230710

REACTIONS (5)
  - Crystalluria [Recovered/Resolved]
  - Back pain [Recovered/Resolved]
  - Haematuria [Recovered/Resolved]
  - Nephrolithiasis [Recovered/Resolved]
  - Back pain [Recovered/Resolved]

NARRATIVE: CASE EVENT DATE: 20231223
